FAERS Safety Report 6207315-5 (Version None)
Quarter: 2009Q2

REPORT INFORMATION
  Report Type: 
  Country: None (occurrence: None)
  Receive Date: 20090527
  Receipt Date: 20090527
  Transmission Date: 20091009
  Serious: Yes (Death)
  Sender: FDA-Public Use
  Company Number: None

PATIENT
  Sex: Male
  Weight: 75 kg

DRUGS (2)
  1. BUSULFAN [Suspect]
     Indication: ACUTE MYELOID LEUKAEMIA
     Dosage: 58 MG 16 DOSES Q 6HR IV
     Route: 042
     Dates: start: 20090318
  2. CYCLOPHOSPHAMIDE [Suspect]
     Indication: ACUTE MYELOID LEUKAEMIA
     Dosage: 4400 MG 3 DOSES FOR 3 DAYS IV
     Route: 042
     Dates: start: 20090321

REACTIONS (6)
  - DIALYSIS [None]
  - HYPOXIA [None]
  - RENAL FAILURE [None]
  - RESPIRATORY FAILURE [None]
  - TRANSPLANT FAILURE [None]
  - VIRAEMIA [None]
